FAERS Safety Report 6164690-8 (Version None)
Quarter: 2009Q2

REPORT INFORMATION
  Report Type: 
  Country: None (occurrence: None)
  Receive Date: 20090423
  Receipt Date: 20090303
  Transmission Date: 20091009
  Serious: No
  Sender: FDA-Public Use
  Company Number: US-KINGPHARMUSA00001-K200900212

PATIENT
  Sex: Female

DRUGS (1)
  1. TAPAZOLE [Suspect]

REACTIONS (3)
  - DEHYDRATION [None]
  - EXOPHTHALMOS [None]
  - VOMITING [None]
